FAERS Safety Report 16107535 (Version 1)
Quarter: 2019Q1

REPORT INFORMATION
  Report Type: Spontaneous
  Country: PT (occurrence: PT)
  Receive Date: 20190322
  Receipt Date: 20190322
  Transmission Date: 20190418
  Serious: Yes (Other)
  Sender: FDA-Public Use
  Company Number: PT-TEVA-2019-PT-1029848

PATIENT
  Age: 71 Year
  Sex: Male

DRUGS (2)
  1. BENDAMUSTINE HYDROCHLORIDE. [Suspect]
     Active Substance: BENDAMUSTINE HYDROCHLORIDE
     Indication: MANTLE CELL LYMPHOMA
     Dosage: UNK UNK, CYCLIC
     Route: 042
     Dates: start: 201504, end: 201506
  2. RITUXIMAB. [Suspect]
     Active Substance: RITUXIMAB
     Indication: MANTLE CELL LYMPHOMA
     Dosage: UNK UNK, CYCLIC
     Route: 042
     Dates: start: 201504, end: 201506

REACTIONS (5)
  - Drug effect incomplete [Unknown]
  - Subdural haematoma [Unknown]
  - Product use in unapproved indication [Unknown]
  - Infusion related reaction [Unknown]
  - Serum sickness [Unknown]

NARRATIVE: CASE EVENT DATE: 2015
